FAERS Safety Report 10673122 (Version 4)
Quarter: 2015Q1

REPORT INFORMATION
  Report Type: Report from Study
  Country: DE (occurrence: DE)
  Receive Date: 20141224
  Receipt Date: 20150122
  Transmission Date: 20150720
  Serious: Yes (Hospitalization)
  Sender: FDA-Public Use
  Company Number: DE-ROCHE-1510510

PATIENT
  Age: 76 Year
  Sex: Female
  Weight: 56 kg

DRUGS (9)
  1. CARBOPLATIN. [Suspect]
     Active Substance: CARBOPLATIN
     Indication: OVARIAN CANCER
     Dosage: DATE OF LAST DOSE PRIOR TO SAE -27/NOV/2014
     Route: 042
     Dates: start: 20141127
  2. BEVACIZUMAB [Suspect]
     Active Substance: BEVACIZUMAB
     Dosage: DATE OF LAST DOSE PRIOR TO SAE - 18/DEC/2014
     Route: 042
     Dates: start: 20141218
  3. HYDROCHLOROTHIAZID [Concomitant]
     Active Substance: HYDROCHLOROTHIAZIDE
     Indication: HYPERTENSION
     Route: 048
     Dates: start: 20130910
  4. BEVACIZUMAB [Suspect]
     Active Substance: BEVACIZUMAB
     Indication: OVARIAN CANCER
     Dosage: DATE OF LAST DOSE PRIOR TO SAE - 18/DEC/2014
     Route: 042
     Dates: start: 20141127
  5. GEMCITABINE [Suspect]
     Active Substance: GEMCITABINE\GEMCITABINE HYDROCHLORIDE
     Indication: OVARIAN CANCER
     Dosage: DATE OF LAST DOSE PRIOR TO SAE : 29/DEC/2014, DOSE A DAY 1+8
     Route: 042
     Dates: start: 20141127
  6. GEMCITABINE [Suspect]
     Active Substance: GEMCITABINE\GEMCITABINE HYDROCHLORIDE
     Dosage: DATE OF LAST DOSE PRIOR TO SAE : 04/DEC/2014
     Route: 042
     Dates: start: 20141127
  7. CARBOPLATIN. [Suspect]
     Active Substance: CARBOPLATIN
     Dosage: DATE OF LAST DOSE PRIOR TO SAE -18 DEC 2014
     Route: 042
     Dates: start: 20141127
  8. GEMCITABINE [Suspect]
     Active Substance: GEMCITABINE\GEMCITABINE HYDROCHLORIDE
     Dosage: DATE OF LAST DOSE PRIOR TO SAE : 18 DEC 2014
     Route: 042
     Dates: start: 20141218
  9. L-THYROXIN [Concomitant]
     Active Substance: LEVOTHYROXINE SODIUM
     Indication: HYPOTHYROIDISM
     Route: 048
     Dates: start: 20080101

REACTIONS (3)
  - Pleural effusion [Recovered/Resolved]
  - Bronchitis [Recovered/Resolved]
  - Dyspnoea [Recovered/Resolved]

NARRATIVE: CASE EVENT DATE: 20141129
